FAERS Safety Report 26114969 (Version 1)
Quarter: 2025Q4

REPORT INFORMATION
  Report Type: Spontaneous
  Country: RU (occurrence: RU)
  Receive Date: 20251203
  Receipt Date: 20251203
  Transmission Date: 20260118
  Serious: Yes (Death, Other)
  Sender: BEIGENE
  Company Number: RU-BEONEMEDICINES-BGN-2025-021213

PATIENT
  Age: 78 Year
  Sex: Male

DRUGS (1)
  1. BRUKINSA [Suspect]
     Active Substance: ZANUBRUTINIB
     Indication: Mantle cell lymphoma
     Dosage: 320 MILLIGRAM, QD
     Route: 065

REACTIONS (3)
  - Death [Fatal]
  - Pulmonary hypertension [Unknown]
  - Pneumothorax [Unknown]
